FAERS Safety Report 7266037-2 (Version None)
Quarter: 2011Q1

REPORT INFORMATION
  Report Type: 
  Country: None (occurrence: None)
  Receive Date: 20110131
  Receipt Date: 20100601
  Transmission Date: 20110831
  Serious: No
  Sender: FDA-Public Use
  Company Number: US-ABBOTT-10P-163-0647960-00

PATIENT
  Sex: Male

DRUGS (1)
  1. LUPRON DEPOT [Suspect]
     Indication: HORMONE THERAPY

REACTIONS (5)
  - HOT FLUSH [None]
  - NIGHT SWEATS [None]
  - NAUSEA [None]
  - ARTHRALGIA [None]
  - MOOD SWINGS [None]
